FAERS Safety Report 7636521-8 (Version None)
Quarter: 2011Q3

REPORT INFORMATION
  Report Type: 
  Country: None (occurrence: None)
  Receive Date: 20110726
  Receipt Date: 20110719
  Transmission Date: 20111222
  Serious: Yes (Hospitalization)
  Sender: FDA-Public Use
  Company Number: JP-MERCK-1107USA02824

PATIENT
  Age: 85 Year
  Sex: Male
  Weight: 49 kg

DRUGS (6)
  1. WARFARIN [Concomitant]
     Route: 065
  2. LAMICTAL [Suspect]
     Indication: EPILEPSY
     Route: 048
     Dates: start: 20110303, end: 20110301
  3. ASPIRIN [Suspect]
     Indication: CEREBRAL INFARCTION
     Route: 048
     Dates: start: 20110227
  4. TEGRETOL [Suspect]
     Indication: EPILEPSY
     Route: 048
     Dates: start: 20110227, end: 20110412
  5. PEPCID RPD [Suspect]
     Route: 048
     Dates: start: 20110227, end: 20110414
  6. CARVEDILOL [Suspect]
     Indication: MYOCARDIAL INFARCTION
     Route: 048
     Dates: start: 20110228, end: 20110414

REACTIONS (1)
  - STEVENS-JOHNSON SYNDROME [None]
